FAERS Safety Report 18306152 (Version 1)
Quarter: 2020Q3

REPORT INFORMATION
  Report Type: Spontaneous
  Country: US (occurrence: US)
  Receive Date: 20200923
  Receipt Date: 20200923
  Transmission Date: 20201103
  Serious: No
  Sender: FDA-Public Use
  Company Number: US-PERRIGO-19US011894

PATIENT

DRUGS (1)
  1. CHILDRENS CETIRIZINE HYDROCHLORIDE ALLERGY [Suspect]
     Active Substance: CETIRIZINE HYDROCHLORIDE
     Indication: HYPERSENSITIVITY
     Dosage: UNKNOWN, SINGLE
     Route: 048
     Dates: start: 201909, end: 201909

REACTIONS (2)
  - Dizziness [Unknown]
  - Confusional state [Unknown]

NARRATIVE: CASE EVENT DATE: 201909
